FAERS Safety Report 5235061-3 (Version None)
Quarter: 2007Q1

REPORT INFORMATION
  Report Type: 
  Country: None (occurrence: None)
  Receive Date: 20070207
  Receipt Date: 20070124
  Transmission Date: 20070707
  Serious: Yes (Other)
  Sender: FDA-Public Use
  Company Number: US019291

PATIENT
  Age: 36 Year
  Sex: Female

DRUGS (2)
  1. PROVIGIL [Suspect]
     Indication: SLEEP DISORDER
     Dates: start: 20060701
  2. CELEXA [Suspect]
     Indication: DEPRESSION
     Dosage: 20 MG QD ORAL
     Route: 048

REACTIONS (3)
  - CHOLELITHIASIS [None]
  - POSTOPERATIVE FEVER [None]
  - WHITE BLOOD CELL COUNT INCREASED [None]
